FAERS Safety Report 5293595-X (Version None)
Quarter: 2007Q2

REPORT INFORMATION
  Report Type: 
  Country: None (occurrence: None)
  Receive Date: 20070411
  Receipt Date: 20070402
  Transmission Date: 20071010
  Serious: Yes (Death, Hospitalization, Disabling)
  Sender: FDA-Public Use
  Company Number: AU-BAXTER-2007BH003360

PATIENT
  Age: 25 Year
  Sex: Male

DRUGS (22)
  1. DEXAMETHASONE [Suspect]
     Indication: NON-HODGKIN'S LYMPHOMA
     Dosage: DOSE UNIT:UNKNOWN
     Route: 065
  2. METHOTREXATE [Suspect]
     Indication: NON-HODGKIN'S LYMPHOMA
     Dosage: DOSE UNIT:UNKNOWN
     Route: 042
  3. METHOTREXATE [Suspect]
     Indication: PROPHYLAXIS
     Dosage: DOSE UNIT:UNKNOWN
     Route: 042
  4. METHOTREXATE [Suspect]
     Route: 037
  5. METHOTREXATE [Suspect]
     Route: 037
  6. METHOTREXATE [Suspect]
     Route: 037
  7. METHOTREXATE [Suspect]
     Route: 037
  8. CYCLOPHOSPHAMIDE [Suspect]
     Indication: NON-HODGKIN'S LYMPHOMA
     Dosage: DOSE UNIT:UNKNOWN
     Route: 065
  9. DOXORUBICIN GENERIC [Suspect]
     Indication: NON-HODGKIN'S LYMPHOMA
     Dosage: DOSE UNIT:UNKNOWN
     Route: 065
  10. VINCRISTINE SULFATE [Suspect]
     Indication: NON-HODGKIN'S LYMPHOMA
     Dosage: DOSE UNIT:UNKNOWN
     Route: 065
  11. CYTARABINE [Suspect]
     Indication: NON-HODGKIN'S LYMPHOMA
     Route: 037
  12. CYTARABINE [Suspect]
     Indication: PROPHYLAXIS
     Route: 037
  13. CYTARABINE [Suspect]
     Dosage: DOSE UNIT:UNKNOWN
     Route: 042
  14. CYTARABINE [Suspect]
     Dosage: DOSE UNIT:UNKNOWN
     Route: 042
  15. CYTARABINE [Suspect]
     Dosage: DOSE UNIT:UNKNOWN
     Route: 042
  16. CYTARABINE [Suspect]
     Dosage: DOSE UNIT:UNKNOWN
     Route: 042
  17. CYTARABINE [Suspect]
     Route: 037
  18. CYTARABINE [Suspect]
     Route: 037
  19. FLUDARABINE [Suspect]
     Indication: NON-HODGKIN'S LYMPHOMA
     Dosage: DOSE UNIT:UNKNOWN
     Route: 042
  20. IDARUBICIN HCL [Suspect]
     Indication: NON-HODGKIN'S LYMPHOMA
     Dosage: DOSE UNIT:UNKNOWN
     Route: 042
  21. STEM CELL TRANSPLANTATION (PERIPHERAL BLOOD STEM CELL TRANSPLANTATION) [Suspect]
     Indication: NON-HODGKIN'S LYMPHOMA
     Dosage: DOSE UNIT:UNKNOWN
     Route: 065
  22. RADIATION THERAPY [Suspect]
     Indication: PROPHYLAXIS
     Dosage: DOSE UNIT:UNKNOWN
     Route: 065

REACTIONS (8)
  - CEREBRAL INFARCTION [None]
  - DEATH [None]
  - DRUG TOXICITY [None]
  - FEBRILE NEUTROPENIA [None]
  - HAEMORRHAGE [None]
  - MYELOPATHY [None]
  - SEPSIS [None]
  - SPINAL CORD DISORDER [None]
